FAERS Safety Report 14134220 (Version 3)
Quarter: 2017Q4

REPORT INFORMATION
  Report Type: Report from Study
  Country: US (occurrence: US)
  Receive Date: 20171026
  Receipt Date: 20171222
  Transmission Date: 20180321
  Serious: Yes (Other)
  Sender: FDA-Public Use
  Company Number: US-TESARO, INC.-US-2017TSO02282

PATIENT

DRUGS (13)
  1. PROTONIX                           /00661201/ [Concomitant]
     Active Substance: OMEPRAZOLE
     Indication: PRODUCT USED FOR UNKNOWN INDICATION
     Dosage: UNK
  2. ZOFRAN [Concomitant]
     Active Substance: ONDANSETRON HYDROCHLORIDE
     Indication: PRODUCT USED FOR UNKNOWN INDICATION
     Dosage: UNK
  3. VITAMIN D                          /00107901/ [Concomitant]
     Active Substance: ERGOCALCIFEROL
     Indication: PRODUCT USED FOR UNKNOWN INDICATION
     Dosage: UNK
  4. MAGNESIUM [Concomitant]
     Active Substance: MAGNESIUM
     Indication: PRODUCT USED FOR UNKNOWN INDICATION
     Dosage: UNK
  5. MELATONIN [Concomitant]
     Active Substance: MELATONIN
     Indication: PRODUCT USED FOR UNKNOWN INDICATION
     Dosage: UNK
  6. VALSARTAN. [Concomitant]
     Active Substance: VALSARTAN
     Indication: PRODUCT USED FOR UNKNOWN INDICATION
     Dosage: UNK
  7. VALACYCLOVIR [Concomitant]
     Active Substance: VALACYCLOVIR HYDROCHLORIDE
     Indication: PRODUCT USED FOR UNKNOWN INDICATION
     Dosage: UNK
  8. ZEJULA [Suspect]
     Active Substance: NIRAPARIB
     Indication: OVARIAN CANCER
     Dosage: 300 MG, QD
     Route: 048
     Dates: start: 20170727
  9. ZEJULA [Suspect]
     Active Substance: NIRAPARIB
     Dosage: 300 MG, QOD (EVERY OTHER DAY)
     Route: 048
     Dates: start: 20170815
  10. GABAPENTIN. [Concomitant]
     Active Substance: GABAPENTIN
     Indication: PRODUCT USED FOR UNKNOWN INDICATION
     Dosage: UNK
  11. IRON [Concomitant]
     Active Substance: IRON
     Indication: PRODUCT USED FOR UNKNOWN INDICATION
     Dosage: UNK
  12. COLACE [Concomitant]
     Active Substance: DOCUSATE SODIUM
     Indication: PRODUCT USED FOR UNKNOWN INDICATION
     Dosage: UNK
  13. ZOCOR [Concomitant]
     Active Substance: SIMVASTATIN
     Indication: PRODUCT USED FOR UNKNOWN INDICATION
     Dosage: UNK

REACTIONS (15)
  - Skin depigmentation [Unknown]
  - Pain [Not Recovered/Not Resolved]
  - Blood pressure increased [Unknown]
  - Emotional distress [Unknown]
  - Dizziness [Unknown]
  - Abdominal pain [Recovered/Resolved]
  - Alopecia [Unknown]
  - Headache [Unknown]
  - Nausea [Unknown]
  - Diverticulitis [Unknown]
  - Pelvic pain [Not Recovered/Not Resolved]
  - Insomnia [Unknown]
  - Disease progression [Unknown]
  - Inappropriate schedule of drug administration [Not Recovered/Not Resolved]
  - Constipation [Unknown]
